FAERS Safety Report 12693159 (Version 1)
Quarter: 2016Q3

REPORT INFORMATION
  Report Type: Spontaneous
  Country: US (occurrence: None)
  Receive Date: 20160826
  Receipt Date: 20160826
  Transmission Date: 20161109
  Serious: Yes (Other)
  Sender: FDA-Public Use
  Company Number: None

PATIENT
  Age: 46 Year
  Sex: Female
  Weight: 85.73 kg

DRUGS (4)
  1. SCOPOLAMINE [Suspect]
     Active Substance: SCOPOLAMINE
     Indication: NAUSEA
     Dates: start: 20160808, end: 20160811
  2. PROBIOTIC [Concomitant]
     Active Substance: PROBIOTICS NOS
  3. MULTIVITAMIN [Concomitant]
     Active Substance: VITAMINS
  4. CALCIUM [Concomitant]
     Active Substance: CALCIUM

REACTIONS (9)
  - Dizziness [None]
  - Feeling abnormal [None]
  - Blood pressure increased [None]
  - Disorientation [None]
  - Pollakiuria [None]
  - Vision blurred [None]
  - Disturbance in attention [None]
  - Chills [None]
  - Thirst [None]

NARRATIVE: CASE EVENT DATE: 20160812
